FAERS Safety Report 11802535 (Version 1)
Quarter: 2015Q4

REPORT INFORMATION
  Report Type: Spontaneous
  Country: US (occurrence: US)
  Receive Date: 20151204
  Receipt Date: 20151204
  Transmission Date: 20160305
  Serious: Yes (Hospitalization, Other)
  Sender: FDA-Public Use
  Company Number: US-BAYER-2015-474908

PATIENT
  Age: 55 Year
  Sex: Female

DRUGS (1)
  1. CIPRO [Suspect]
     Active Substance: CIPROFLOXACIN HYDROCHLORIDE
     Indication: COLITIS
     Dosage: 500 MG, BID
     Dates: start: 20151113

REACTIONS (3)
  - Product use issue [None]
  - Melaena [None]
  - Drug interaction [None]

NARRATIVE: CASE EVENT DATE: 20151121
